FAERS Safety Report 24723646 (Version 2)
Quarter: 2025Q1

REPORT INFORMATION
  Report Type: Spontaneous
  Country: US (occurrence: US)
  Receive Date: 20241211
  Receipt Date: 20250211
  Transmission Date: 20250409
  Serious: No
  Sender: SANOFI AVENTIS
  Company Number: US-SA-2024SA364196

PATIENT
  Age: 76 Year
  Sex: Female

DRUGS (1)
  1. DUPIXENT [Suspect]
     Active Substance: DUPILUMAB
     Indication: Dermatitis
     Dosage: 300 MG, QOW
     Route: 058
     Dates: start: 202008

REACTIONS (4)
  - Erythema [Recovering/Resolving]
  - Oral herpes [Unknown]
  - Condition aggravated [Unknown]
  - Product use in unapproved indication [Unknown]

NARRATIVE: CASE EVENT DATE: 20200801
